FAERS Safety Report 12068091 (Version 1)
Quarter: 2016Q1

REPORT INFORMATION
  Report Type: Spontaneous
  Country: US (occurrence: US)
  Receive Date: 20160211
  Receipt Date: 20160211
  Transmission Date: 20160526
  Serious: No
  Sender: FDA-Public Use
  Company Number: US-SMITH AND NEPHEW, INC-2015SMT00315

PATIENT
  Sex: Male
  Weight: 129.25 kg

DRUGS (4)
  1. FLAGYL [Concomitant]
     Active Substance: METRONIDAZOLE\METRONIDAZOLE HYDROCHLORIDE
  2. UNSPECIFIED MEDICATION(S) [Concomitant]
  3. GLIPIZIDE. [Concomitant]
     Active Substance: GLIPIZIDE
  4. REGRANEX [Suspect]
     Active Substance: BECAPLERMIN
     Indication: WOUND
     Dosage: UNK UNK, 1X/DAY
     Route: 061
     Dates: start: 201508, end: 2015

REACTIONS (5)
  - Application site pain [Recovered/Resolved]
  - Application site irritation [Recovering/Resolving]
  - Wound complication [Recovering/Resolving]
  - Application site erythema [Recovering/Resolving]
  - Application site inflammation [Recovering/Resolving]

NARRATIVE: CASE EVENT DATE: 2015
